FAERS Safety Report 10224915 (Version 2)
Quarter: 2015Q3

REPORT INFORMATION
  Report Type: Report from Study
  Country: BR (occurrence: BR)
  Receive Date: 20140609
  Receipt Date: 20150706
  Transmission Date: 20151125
  Serious: Yes (Death, Other)
  Sender: FDA-Public Use
  Company Number: BR-BRISTOL-MYERS SQUIBB COMPANY-20956827

PATIENT
  Sex: Female
  Weight: 70 kg

DRUGS (2)
  1. XELODA [Concomitant]
     Active Substance: CAPECITABINE
     Indication: PRODUCT USED FOR UNKNOWN INDICATION
     Route: 065
  2. CETUXIMAB [Suspect]
     Active Substance: CETUXIMAB
     Indication: COLORECTAL CANCER
     Route: 042

REACTIONS (3)
  - Malignant neoplasm progression [Fatal]
  - Skin reaction [Recovered/Resolved]
  - Nail bed bleeding [Recovered/Resolved]

NARRATIVE: CASE EVENT DATE: 2013
